FAERS Safety Report 11692852 (Version 3)
Quarter: 2016Q2

REPORT INFORMATION
  Report Type: Spontaneous
  Country: US (occurrence: US)
  Receive Date: 20151103
  Receipt Date: 20160427
  Transmission Date: 20160815
  Serious: No
  Sender: FDA-Public Use
  Company Number: US-AMGEN-USASP2015114944

PATIENT
  Age: 64 Year
  Sex: Female

DRUGS (1)
  1. ENBREL [Suspect]
     Active Substance: ETANERCEPT
     Indication: RHEUMATOID ARTHRITIS
     Dosage: 50 MG, QWK
     Route: 058
     Dates: start: 201508, end: 201603

REACTIONS (27)
  - Scratch [Unknown]
  - Rash [Unknown]
  - Dry skin [Unknown]
  - Skin atrophy [Unknown]
  - Mood swings [Unknown]
  - Ulcer [Unknown]
  - Nail disorder [Unknown]
  - Laceration [Unknown]
  - Condition aggravated [Unknown]
  - Dyspnoea [Unknown]
  - Muscle twitching [Unknown]
  - Skin exfoliation [Unknown]
  - Hot flush [Unknown]
  - Diarrhoea [Unknown]
  - Vision blurred [Unknown]
  - Diplopia [Unknown]
  - Weight increased [Unknown]
  - Gastric disorder [Unknown]
  - Sinus disorder [Unknown]
  - Visual impairment [Not Recovered/Not Resolved]
  - Hypoaesthesia [Unknown]
  - Asthma [Unknown]
  - Contusion [Unknown]
  - Blood pressure increased [Unknown]
  - Arthralgia [Unknown]
  - Corrective lens user [Not Recovered/Not Resolved]
  - Pruritus [Unknown]

NARRATIVE: CASE EVENT DATE: 2015
